FAERS Safety Report 23182617 (Version 1)
Quarter: 2023Q4

REPORT INFORMATION
  Report Type: Spontaneous
  Country: CN (occurrence: CN)
  Receive Date: 20231114
  Receipt Date: 20231114
  Transmission Date: 20240109
  Serious: Yes (Life-Threatening)
  Sender: FDA-Public Use
  Company Number: CN-PFIZER INC-PV202300184267

PATIENT
  Age: 19 Year
  Sex: Female
  Weight: 44.5 kg

DRUGS (3)
  1. CYTARABINE [Suspect]
     Active Substance: CYTARABINE
     Indication: Acute myeloid leukaemia
     Dosage: 50 MG, 1X/DAY
     Route: 037
     Dates: start: 20231003, end: 20231003
  2. CYTARABINE [Suspect]
     Active Substance: CYTARABINE
     Dosage: 2260 MG, 2X/DAY
     Route: 041
     Dates: start: 20231004, end: 20231006
  3. DAUNORUBICIN HYDROCHLORIDE [Suspect]
     Active Substance: DAUNORUBICIN HYDROCHLORIDE
     Indication: Acute myeloid leukaemia
     Dosage: 68 MG, 1X/DAY
     Route: 041
     Dates: start: 20231004, end: 20231006

REACTIONS (7)
  - Infection [Recovering/Resolving]
  - Depressed mood [Recovering/Resolving]
  - Decreased appetite [Recovering/Resolving]
  - Oral pain [Recovering/Resolving]
  - Oral mucosa erosion [Recovering/Resolving]
  - Decreased immune responsiveness [Recovering/Resolving]
  - Myelosuppression [Recovering/Resolving]

NARRATIVE: CASE EVENT DATE: 20231011
